FAERS Safety Report 9469314 (Version 1)
Quarter: 2013Q3

REPORT INFORMATION
  Report Type: Spontaneous
  Country: US (occurrence: None)
  Receive Date: 20130815
  Receipt Date: 20130815
  Transmission Date: 20140515
  Serious: Yes (Hospitalization)
  Sender: FDA-Public Use
  Company Number: SYM-2013-08395

PATIENT
  Age: 87 Year
  Sex: Female

DRUGS (9)
  1. XENAZINE [Suspect]
     Indication: HUNTINGTON^S DISEASE
     Route: 048
  2. METAMUCIL (PLANTAGO OVATA) [Concomitant]
  3. LANTUS INSULIN (INSULIN GLARGINE) [Concomitant]
  4. KLONOPIN (CLONAZEPAM) (TABLETS) [Concomitant]
  5. ASPIRIN (ACETYLSALICYLIC ACID) [Concomitant]
  6. LASIX (FUROSEMIDE) [Concomitant]
  7. LEXAPRO (ESCITALOPRAM OXALATE) [Concomitant]
  8. METFORMIN (METFORMIN) [Concomitant]
  9. ALLOPURINOL [Concomitant]

REACTIONS (1)
  - Haemorrhage [None]
